FAERS Safety Report 14112468 (Version 2)
Quarter: 2017Q4

REPORT INFORMATION
  Report Type: Report from Study
  Country: US (occurrence: US)
  Receive Date: 20171020
  Receipt Date: 20171101
  Transmission Date: 20180321
  Serious: Yes (Other)
  Sender: FDA-Public Use
  Company Number: US-LUNDBECK-DKLU2038802

PATIENT
  Age: 4 Year
  Sex: Male

DRUGS (6)
  1. CLOBAZAM [Suspect]
     Active Substance: CLOBAZAM
     Indication: EPILEPSY
     Dosage: TITRATION PERIOD (2 WEEKS) FOLLOWED BY A MAINTENANCE PHASE (4 WEEKS).
     Route: 048
     Dates: start: 20150603, end: 20150609
  2. CLOBAZAM [Suspect]
     Active Substance: CLOBAZAM
     Dosage: TITRATION PERIOD (2 WEEKS) FOLLOWED BY A MAINTENANCE PHASE (4 WEEKS).
     Route: 048
     Dates: start: 20150610, end: 20150619
  3. CLOBAZAM [Suspect]
     Active Substance: CLOBAZAM
     Dosage: TITRATION PERIOD (2 WEEKS) FOLLOWED BY A MAINTENANCE PHASE (4 WEEKS).
     Route: 048
     Dates: start: 20150620, end: 20150630
  4. CLOBAZAM [Suspect]
     Active Substance: CLOBAZAM
     Route: 048
     Dates: end: 20150701
  5. VALPROIC ACID. [Concomitant]
     Active Substance: VALPROIC ACID
     Indication: PRODUCT USED FOR UNKNOWN INDICATION
     Dosage: 150 MG-150 MG-200 MG
     Route: 065
  6. ZONEGRAN [Concomitant]
     Active Substance: ZONISAMIDE
     Indication: PRODUCT USED FOR UNKNOWN INDICATION
     Route: 065

REACTIONS (3)
  - Generalised tonic-clonic seizure [Recovering/Resolving]
  - Lethargy [Recovering/Resolving]
  - Seizure [Recovering/Resolving]

NARRATIVE: CASE EVENT DATE: 20150614
